FAERS Safety Report 4417069-0 (Version None)
Quarter: 2004Q3

REPORT INFORMATION
  Report Type: 
  Country: None (occurrence: None)
  Receive Date: 20040806
  Receipt Date: 20040727
  Transmission Date: 20050211
  Serious: Yes (Other)
  Sender: FDA-Public Use
  Company Number: JP-BRISTOL-MYERS SQUIBB COMPANY-12653267

PATIENT
  Age: 73 Year
  Sex: Male

DRUGS (3)
  1. TAXOL [Suspect]
     Indication: NON-SMALL CELL LUNG CANCER
     Dosage: THERAPY DATES: 21-APR-2000 TO 05-JUL-2000.
     Route: 042
     Dates: start: 20000705, end: 20000705
  2. PARAPLATIN [Suspect]
     Indication: NON-SMALL CELL LUNG CANCER
     Dosage: THERAPY DATES: 21-APR-2000 TO 21-JUN-2000.
     Route: 042
     Dates: start: 20000621, end: 20000721
  3. RADIATION THERAPY [Suspect]
     Indication: NON-SMALL CELL LUNG CANCER
     Dosage: 40 GY

REACTIONS (1)
  - INTERSTITIAL LUNG DISEASE [None]
